FAERS Safety Report 18790543 (Version 1)
Quarter: 2021Q1

REPORT INFORMATION
  Report Type: Spontaneous
  Country: US (occurrence: US)
  Receive Date: 20210126
  Receipt Date: 20210126
  Transmission Date: 20210419
  Serious: Yes (Death, Other)
  Sender: FDA-Public Use
  Company Number: US-GLAXOSMITHKLINE-US2021GSK007503

PATIENT
  Sex: Male

DRUGS (28)
  1. RANITIDINE. [Suspect]
     Active Substance: RANITIDINE
     Indication: DYSPEPSIA
  2. ZANTAC [Suspect]
     Active Substance: RANITIDINE HYDROCHLORIDE
     Indication: DYSPEPSIA
  3. ZANTAC [Suspect]
     Active Substance: RANITIDINE HYDROCHLORIDE
     Indication: DYSPEPSIA
  4. ZANTAC [Suspect]
     Active Substance: RANITIDINE HYDROCHLORIDE
     Indication: ERUCTATION
  5. RANITIDINE. [Suspect]
     Active Substance: RANITIDINE
     Indication: GASTROOESOPHAGEAL REFLUX DISEASE
     Dosage: UNKNOWN AT THIS TIME BOTH
     Route: 065
     Dates: start: 199101, end: 201301
  6. RANITIDINE. [Suspect]
     Active Substance: RANITIDINE
     Indication: DYSPEPSIA
  7. ZANTAC [Suspect]
     Active Substance: RANITIDINE HYDROCHLORIDE
     Indication: GASTROOESOPHAGEAL REFLUX DISEASE
     Dosage: UNKNOWN AT THIS TIME BOTH
     Route: 065
     Dates: start: 199101, end: 201301
  8. RANITIDINE. [Suspect]
     Active Substance: RANITIDINE
     Indication: GASTROOESOPHAGEAL REFLUX DISEASE
     Dosage: UNKNOWN AT THIS TIME BOTH
     Route: 065
     Dates: start: 199101, end: 201301
  9. RANITIDINE. [Suspect]
     Active Substance: RANITIDINE
     Indication: ERUCTATION
  10. RANITIDINE. [Suspect]
     Active Substance: RANITIDINE
     Indication: ERUCTATION
  11. RANITIDINE. [Suspect]
     Active Substance: RANITIDINE
     Indication: ERUCTATION
  12. RANITIDINE. [Suspect]
     Active Substance: RANITIDINE
     Indication: HICCUPS
  13. ZANTAC [Suspect]
     Active Substance: RANITIDINE HYDROCHLORIDE
     Indication: HICCUPS
  14. RANITIDINE. [Suspect]
     Active Substance: RANITIDINE
     Indication: GASTROOESOPHAGEAL REFLUX DISEASE
     Dosage: UNKNOWN AT THIS TIME BOTH
     Route: 065
     Dates: start: 199101, end: 201301
  15. ZANTAC [Suspect]
     Active Substance: RANITIDINE HYDROCHLORIDE
     Indication: GASTROOESOPHAGEAL REFLUX DISEASE
     Dosage: UNKNOWN AT THIS TIME BOTH
     Route: 065
     Dates: start: 199101, end: 201301
  16. ZANTAC [Suspect]
     Active Substance: RANITIDINE HYDROCHLORIDE
     Indication: GASTROOESOPHAGEAL REFLUX DISEASE
     Dosage: UNKNOWN AT THIS TIME BOTH
     Route: 065
     Dates: start: 199101, end: 201301
  17. RANITIDINE. [Suspect]
     Active Substance: RANITIDINE
     Indication: DYSPEPSIA
  18. RANITIDINE. [Suspect]
     Active Substance: RANITIDINE
     Indication: HICCUPS
  19. ZANTAC [Suspect]
     Active Substance: RANITIDINE HYDROCHLORIDE
     Indication: ERUCTATION
  20. ZANTAC [Suspect]
     Active Substance: RANITIDINE HYDROCHLORIDE
     Indication: HICCUPS
  21. RANITIDINE CAPSULE [Suspect]
     Active Substance: RANITIDINE
     Indication: GASTROOESOPHAGEAL REFLUX DISEASE
     Dosage: UNKNOWN AT THIS TIME BOTH
     Route: 065
     Dates: start: 199101, end: 201301
  22. RANITIDINE CAPSULE [Suspect]
     Active Substance: RANITIDINE
     Indication: ERUCTATION
  23. ZANTAC [Suspect]
     Active Substance: RANITIDINE HYDROCHLORIDE
     Indication: DYSPEPSIA
  24. ZANTAC [Suspect]
     Active Substance: RANITIDINE HYDROCHLORIDE
     Indication: ERUCTATION
  25. RANITIDINE CAPSULE [Suspect]
     Active Substance: RANITIDINE
     Indication: DYSPEPSIA
  26. RANITIDINE CAPSULE [Suspect]
     Active Substance: RANITIDINE
     Indication: HICCUPS
  27. RANITIDINE. [Suspect]
     Active Substance: RANITIDINE
     Indication: HICCUPS
  28. ZANTAC [Suspect]
     Active Substance: RANITIDINE HYDROCHLORIDE
     Indication: HICCUPS

REACTIONS (1)
  - Pancreatic carcinoma [Fatal]
